FAERS Safety Report 6765211-9 (Version None)
Quarter: 2010Q2

REPORT INFORMATION
  Report Type: 
  Country: None (occurrence: None)
  Receive Date: 20100610
  Receipt Date: 20100610
  Transmission Date: 20101027
  Serious: Yes (Other)
  Sender: FDA-Public Use
  Company Number: None

PATIENT
  Sex: Female
  Weight: 81.6475 kg

DRUGS (1)
  1. CHANTIX [Suspect]
     Indication: SMOKING CESSATION THERAPY
     Dosage: 5 MG FOR 3 DAYS, 1 MG FOR 4 DAY; 2 MG AFTER 7 DAYS PO
     Route: 048
     Dates: start: 20100528, end: 20100606

REACTIONS (3)
  - HALLUCINATION [None]
  - NIGHTMARE [None]
  - SOMNAMBULISM [None]
